FAERS Safety Report 4413049-X (Version None)
Quarter: 2004Q3

REPORT INFORMATION
  Report Type: 
  Country: None (occurrence: None)
  Receive Date: 20040727
  Receipt Date: 20040719
  Transmission Date: 20050211
  Serious: Yes (Hospitalization)
  Sender: FDA-Public Use
  Company Number: 163-20785-04070451

PATIENT
  Age: 81 Year
  Sex: Male

DRUGS (1)
  1. THALOMID [Suspect]
     Indication: RENAL CELL CARCINOMA STAGE UNSPECIFIED
     Dosage: 200 MG, DAILY, ORAL
     Route: 048
     Dates: start: 20040709

REACTIONS (2)
  - ASTHENIA [None]
  - RECTAL HAEMORRHAGE [None]
